FAERS Safety Report 8805542 (Version 1)
Quarter: 2012Q4

REPORT INFORMATION
  Report Type: 
  Country: IT (occurrence: IT)
  Receive Date: 20120924
  Receipt Date: 20120924
  Transmission Date: 20130627
  Serious: Yes (Hospitalization)
  Sender: FDA-Public Use
  Company Number: IT-ROCHE-1134748

PATIENT
  Age: 89 Year
  Sex: Female

DRUGS (1)
  1. LIXIDOL [Suspect]
     Indication: RENAL COLIC
     Dosage: form strength: 30 mg/ml
     Route: 030
     Dates: start: 20120906, end: 20120910

REACTIONS (2)
  - Anaemia [Recovered/Resolved]
  - Duodenal ulcer haemorrhage [Recovered/Resolved]
